FAERS Safety Report 5924204-1 (Version None)
Quarter: 2008Q4

REPORT INFORMATION
  Report Type: 
  Country: None (occurrence: None)
  Receive Date: 20081020
  Receipt Date: 20081008
  Transmission Date: 20090506
  Serious: Yes (Other)
  Sender: FDA-Public Use
  Company Number: US-JNJCH-2008051716

PATIENT
  Age: 65 Year
  Sex: Male
  Weight: 79.4 kg

DRUGS (1)
  1. ROGAINE 5 [Suspect]
     Indication: ALOPECIA
     Dosage: TEXT:UNSPECIFIED
     Route: 061
     Dates: start: 20080101, end: 20081008

REACTIONS (1)
  - BLOOD PRESSURE INCREASED [None]
